FAERS Safety Report 13470181 (Version 1)
Quarter: 2017Q2

REPORT INFORMATION
  Report Type: Spontaneous
  Country: US (occurrence: US)
  Receive Date: 20170421
  Receipt Date: 20170421
  Transmission Date: 20170830
  Serious: Yes (Other)
  Sender: FDA-Public Use
  Company Number: None

PATIENT
  Age: 47 Year
  Sex: Female
  Weight: 60.3 kg

DRUGS (3)
  1. ROSUVASTATIN 40 MG TABS [Suspect]
     Active Substance: ROSUVASTATIN
     Indication: BLOOD CHOLESTEROL INCREASED
     Route: 048
     Dates: start: 20160606, end: 20170419
  2. PRENATAL VITAMINS [Concomitant]
     Active Substance: VITAMINS
  3. MARIJUANNA [Concomitant]

REACTIONS (3)
  - Myalgia [None]
  - Muscle spasms [None]
  - Product substitution issue [None]

NARRATIVE: CASE EVENT DATE: 20170418
